FAERS Safety Report 11634748 (Version 1)
Quarter: 2015Q4

REPORT INFORMATION
  Report Type: Spontaneous
  Country: US (occurrence: US)
  Receive Date: 20151015
  Receipt Date: 20151015
  Transmission Date: 20160304
  Serious: Yes (Other)
  Sender: FDA-Public Use
  Company Number: US-PFIZER INC-2015342499

PATIENT
  Sex: Female

DRUGS (5)
  1. EFFEXOR [Suspect]
     Active Substance: VENLAFAXINE HYDROCHLORIDE
     Dosage: (TOOK HALF OF THE PILL), UNK
     Dates: end: 201510
  2. EFFEXOR XR [Suspect]
     Active Substance: VENLAFAXINE HYDROCHLORIDE
     Dosage: 75 MG (2 CAPSULES), UNK
  3. EFFEXOR XR [Suspect]
     Active Substance: VENLAFAXINE HYDROCHLORIDE
     Dosage: 75 MG, (3 CAPSULES), UNK
  4. EFFEXOR XR [Suspect]
     Active Substance: VENLAFAXINE HYDROCHLORIDE
     Dosage: 75 MG (1 CAPSULE), UNK
  5. EFFEXOR XR [Suspect]
     Active Substance: VENLAFAXINE HYDROCHLORIDE
     Dosage: 25 MG, ALTERNATE DAY

REACTIONS (13)
  - Agitation [Unknown]
  - Ocular hyperaemia [Unknown]
  - Malabsorption [Unknown]
  - Feeling abnormal [Unknown]
  - Obesity [Unknown]
  - Intentional product use issue [Unknown]
  - Hyperhidrosis [Unknown]
  - Claustrophobia [Unknown]
  - Panic disorder [Unknown]
  - Formication [Unknown]
  - Swelling [Unknown]
  - Irritability [Unknown]
  - Thinking abnormal [Unknown]
